FAERS Safety Report 13193460 (Version 1)
Quarter: 2017Q1

REPORT INFORMATION
  Report Type: Spontaneous
  Country: AU (occurrence: AU)
  Receive Date: 20170207
  Receipt Date: 20170207
  Transmission Date: 20170428
  Serious: Yes (Other)
  Sender: FDA-Public Use
  Company Number: AU-ABBVIE-17P-008-1862030-00

PATIENT
  Sex: Male

DRUGS (1)
  1. KLACID [Suspect]
     Active Substance: CLARITHROMYCIN
     Indication: SINUSITIS
     Route: 065

REACTIONS (4)
  - Haematochezia [Recovered/Resolved]
  - Dyschezia [Recovered/Resolved]
  - Myalgia [Recovered/Resolved]
  - Rash [Recovered/Resolved]
